FAERS Safety Report 5345338-9 (Version None)
Quarter: 2007Q2

REPORT INFORMATION
  Report Type: 
  Country: None (occurrence: None)
  Receive Date: 20070601
  Receipt Date: 20070521
  Transmission Date: 20071010
  Serious: Yes (Other)
  Sender: FDA-Public Use
  Company Number: 155935USA

PATIENT
  Age: 56 Year
  Sex: Female

DRUGS (5)
  1. CLOZAPINE [Suspect]
     Dosage: 300 MG, ORAL
     Route: 048
     Dates: start: 19991001, end: 20070413
  2. RALOXIFENE HCL [Concomitant]
  3. BUSPIRONE HCL [Concomitant]
  4. VALPROATE SODIUM [Concomitant]
  5. ARIFENACIN HYDROBROMIDE [Concomitant]

REACTIONS (5)
  - ANAEMIA [None]
  - DEHYDRATION [None]
  - DEPRESSED LEVEL OF CONSCIOUSNESS [None]
  - ORAL INTAKE REDUCED [None]
  - RENAL FAILURE [None]
